FAERS Safety Report 9551026 (Version 5)
Quarter: 2016Q2

REPORT INFORMATION
  Report Type: Report from Study
  Country: US (occurrence: US)
  Receive Date: 20130924
  Receipt Date: 20160525
  Transmission Date: 20160815
  Serious: Yes (Hospitalization, Other)
  Sender: FDA-Public Use
  Company Number: US-SANOFI-AVENTIS-2013SA052266

PATIENT
  Age: 57 Year
  Sex: Female

DRUGS (8)
  1. AUBAGIO [Suspect]
     Active Substance: TERIFLUNOMIDE
     Indication: MULTIPLE SCLEROSIS
     Route: 048
  2. LISINOPRIL. [Concomitant]
     Active Substance: LISINOPRIL
     Indication: HYPERTENSION
  3. BYSTOLIC [Concomitant]
     Active Substance: NEBIVOLOL HYDROCHLORIDE
     Indication: HYPERTENSION
  4. BABY ASPIRIN [Concomitant]
     Active Substance: ASPIRIN
     Dates: start: 20151216
  5. AMLODIPINE [Concomitant]
     Active Substance: AMLODIPINE BESYLATE
     Indication: HYPERTENSION
  6. CYMBALTA [Concomitant]
     Active Substance: DULOXETINE HYDROCHLORIDE
     Indication: MULTIPLE SCLEROSIS
  7. BUPROPION HYDROCHLORIDE. [Concomitant]
     Active Substance: BUPROPION HYDROCHLORIDE
  8. AUBAGIO [Suspect]
     Active Substance: TERIFLUNOMIDE
     Indication: MULTIPLE SCLEROSIS
     Route: 048
     Dates: start: 20130504

REACTIONS (23)
  - Alopecia [Not Recovered/Not Resolved]
  - Orthosis user [Unknown]
  - Muscle spasms [Not Recovered/Not Resolved]
  - Fatigue [Not Recovered/Not Resolved]
  - Hypoaesthesia [Not Recovered/Not Resolved]
  - Nausea [Recovering/Resolving]
  - Weight decreased [Not Recovered/Not Resolved]
  - Burning sensation [Unknown]
  - Dizziness [Unknown]
  - Headache [Recovering/Resolving]
  - Vomiting [Not Recovered/Not Resolved]
  - Muscle tone disorder [Unknown]
  - Hepatic enzyme increased [Unknown]
  - Multiple sclerosis relapse [Recovered/Resolved]
  - Abasia [Recovered/Resolved]
  - Dyspnoea exertional [Not Recovered/Not Resolved]
  - Pain [Recovering/Resolving]
  - Influenza like illness [Not Recovered/Not Resolved]
  - Blood potassium decreased [Not Recovered/Not Resolved]
  - Muscular weakness [Recovered/Resolved]
  - Limb discomfort [Recovered/Resolved]
  - Hypertension [Recovering/Resolving]
  - Central nervous system lesion [Unknown]

NARRATIVE: CASE EVENT DATE: 2013
